FAERS Safety Report 23113879 (Version 1)
Quarter: 2023Q4

REPORT INFORMATION
  Report Type: Spontaneous
  Country: PT (occurrence: PT)
  Receive Date: 20231027
  Receipt Date: 20231027
  Transmission Date: 20240110
  Serious: Yes (Other)
  Sender: FDA-Public Use
  Company Number: PT-PFIZER INC-PV202300170190

PATIENT
  Age: 14 Year

DRUGS (2)
  1. ADALIMUMAB [Suspect]
     Active Substance: ADALIMUMAB\ISOPROPYL ALCOHOL
     Indication: Juvenile idiopathic arthritis
     Dosage: UNK, WEEKLY
  2. METHOTREXATE SODIUM [Suspect]
     Active Substance: METHOTREXATE SODIUM
     Indication: Juvenile idiopathic arthritis
     Dosage: 25 MG, WEEKLY?FORM OF ADMIN. SOLUTION FOR INJECTION
     Route: 058

REACTIONS (4)
  - Iridocyclitis [Recovered/Resolved]
  - Drug intolerance [Unknown]
  - Synovitis [Unknown]
  - Off label use [Unknown]
